FAERS Safety Report 8258905 (Version 2)
Quarter: 2014Q2

REPORT INFORMATION
  Report Type: Spontaneous
  Country: US (occurrence: None)
  Receive Date: 20111114
  Receipt Date: 20140618
  Transmission Date: 20141212
  Serious: Yes (Life-Threatening)
  Sender: FDA-Public Use
  Company Number: 125766

PATIENT
  Age: 57 Year
  Sex: Male

DRUGS (1)
  1. CERUBIDINE [Suspect]
     Indication: ACUTE LEUKAEMIA
     Dosage: IV, 1X/DAY
     Route: 042
     Dates: start: 20100408, end: 20110410

REACTIONS (1)
  - Septic shock [None]
